FAERS Safety Report 8622955-1 (Version None)
Quarter: 2012Q3

REPORT INFORMATION
  Report Type: 
  Country: None (occurrence: None)
  Receive Date: 20120827
  Receipt Date: 20120823
  Transmission Date: 20120928
  Serious: Yes (Death)
  Sender: FDA-Public Use
  Company Number: PHEH2012US016646

PATIENT
  Sex: Male

DRUGS (3)
  1. PREVACID [Concomitant]
  2. GLEEVEC [Suspect]
     Indication: RENAL CANCER
     Dosage: 400 MG, DAILY
     Route: 048
     Dates: start: 20120105
  3. RAPAMUNE [Concomitant]

REACTIONS (2)
  - NEOPLASM MALIGNANT [None]
  - HEPATIC NEOPLASM MALIGNANT [None]
